FAERS Safety Report 19197067 (Version 3)
Quarter: 2021Q3

REPORT INFORMATION
  Report Type: Report from Study
  Country: None (occurrence: US)
  Receive Date: 20210430
  Receipt Date: 20210705
  Transmission Date: 20211014
  Serious: Yes (Other)
  Sender: FDA-Public Use
  Company Number: US-ABBVIE-21K-163-3880947-00

PATIENT
  Sex: Female

DRUGS (2)
  1. HUMIRA [Suspect]
     Active Substance: ADALIMUMAB
     Route: 058
  2. HUMIRA [Suspect]
     Active Substance: ADALIMUMAB
     Indication: PSORIASIS
     Route: 058

REACTIONS (6)
  - Rash [Unknown]
  - Knee operation [Recovering/Resolving]
  - Joint dislocation [Unknown]
  - Psoriasis [Recovered/Resolved]
  - Rheumatoid arthritis [Unknown]
  - Dysstasia [Recovered/Resolved]
